FAERS Safety Report 15997143 (Version 1)
Quarter: 2019Q1

REPORT INFORMATION
  Report Type: Spontaneous
  Country: PE (occurrence: PE)
  Receive Date: 20190222
  Receipt Date: 20190222
  Transmission Date: 20190418
  Serious: Yes (Other)
  Sender: FDA-Public Use
  Company Number: PE-BAYER-2019-035717

PATIENT
  Sex: Female

DRUGS (1)
  1. BETAFERON [Suspect]
     Active Substance: INTERFERON BETA-1B
     Indication: MULTIPLE SCLEROSIS
     Dosage: UNK
     Dates: start: 2014

REACTIONS (5)
  - Superinfection [None]
  - Injection site scab [Recovered/Resolved]
  - Injection site scab [Not Recovered/Not Resolved]
  - Injection site ulcer [None]
  - Injection site reaction [None]

NARRATIVE: CASE EVENT DATE: 2017
